FAERS Safety Report 9222191 (Version 1)
Quarter: 2013Q1

REPORT INFORMATION
  Report Type: Spontaneous
  Country: US (occurrence: None)
  Receive Date: 20120914
  Receipt Date: 20120914
  Transmission Date: 20140127
  Serious: Yes (Life-Threatening, Hospitalization)
  Sender: FDA-Public Use
  Company Number: JPI-P-020265

PATIENT
  Age: 56 Year
  Sex: Female
  Weight: 59.42 kg

DRUGS (4)
  1. XYREM (500 MILLIGRAM/MILLILITERS, SOLUTION) (SODIUM OXYBATE) [Suspect]
     Indication: INSOMNIA
     Dosage: 3 GM (1.5 GM,2 IN 1 D)
     Route: 048
     Dates: start: 20090828
  2. OXYCODONE HYDROCHLORIDE) [Concomitant]
  3. DULOXETINE HYDROCHLORIDE [Concomitant]
  4. GABAPENTIN [Concomitant]

REACTIONS (1)
  - Overdose [None]
